FAERS Safety Report 5071965-2 (Version None)
Quarter: 2006Q3

REPORT INFORMATION
  Report Type: 
  Country: None (occurrence: None)
  Receive Date: 20060714
  Receipt Date: 20060531
  Transmission Date: 20061208
  Serious: No
  Sender: FDA-Public Use
  Company Number: 2006SP002269

PATIENT
  Age: 69 Year
  Sex: Female
  Weight: 75.2971 kg

DRUGS (7)
  1. LUNESTA [Suspect]
     Indication: INSOMNIA
     Dosage: 3 MG; ORAL
     Route: 048
     Dates: start: 20060524
  2. AMBIEN [Concomitant]
  3. SYNTHROID [Concomitant]
  4. WARFARIN SODIUM [Concomitant]
  5. SOTALOL HYDROCHLORIDE [Concomitant]
  6. DIGOXIN [Concomitant]
  7. ATORVASTATIN CALCIUM [Concomitant]

REACTIONS (3)
  - DIZZINESS [None]
  - NASAL CONGESTION [None]
  - SOMNOLENCE [None]
